FAERS Safety Report 16851855 (Version 2)
Quarter: 2019Q4

REPORT INFORMATION
  Report Type: Spontaneous
  Country: US (occurrence: US)
  Receive Date: 20190925
  Receipt Date: 20191001
  Transmission Date: 20200122
  Serious: Yes (Other)
  Sender: FDA-Public Use
  Company Number: US-BAYER-2019-174266

PATIENT
  Age: 78 Year
  Sex: Female

DRUGS (2)
  1. ACETYLSALICYLIC ACID (CARDIO) [Suspect]
     Active Substance: ASPIRIN
     Indication: ANTIPLATELET THERAPY
  2. TICAGRELOR. [Suspect]
     Active Substance: TICAGRELOR

REACTIONS (3)
  - Gastric ulcer haemorrhage [None]
  - Labelled drug-drug interaction medication error [None]
  - Iron deficiency anaemia [Recovering/Resolving]
